FAERS Safety Report 14344594 (Version 3)
Quarter: 2020Q1

REPORT INFORMATION
  Report Type: Report from Study
  Country: BE (occurrence: BE)
  Receive Date: 20180102
  Receipt Date: 20200203
  Transmission Date: 20200409
  Serious: Yes (Other)
  Sender: FDA-Public Use
  Company Number: BE-MYLANLABS-2017M1083904

PATIENT
  Age: 70 Year
  Sex: Female
  Weight: 52 kg

DRUGS (4)
  1. BEVACIZUMAB. [Suspect]
     Active Substance: BEVACIZUMAB
     Indication: OVARIAN CANCER
     Dosage: 1 DF, Q3W
     Route: 042
     Dates: start: 20161130
  2. AVASTIN                            /00848101/ [Suspect]
     Active Substance: SIMVASTATIN
     Indication: OVARIAN CANCER
     Dosage: 1 DOSAGE FORM, Q3W
     Route: 042
     Dates: start: 20161130
  3. PACLITAXEL. [Suspect]
     Active Substance: PACLITAXEL
     Indication: OVARIAN CANCER
     Dosage: 1 DF, Q3W
     Route: 042
     Dates: start: 20161130
  4. CARBOPLATIN. [Suspect]
     Active Substance: CARBOPLATIN
     Indication: OVARIAN CANCER
     Dosage: 5 AUC Q3W
     Route: 042
     Dates: start: 20161130

REACTIONS (9)
  - Urinary tract infection [Recovered/Resolved]
  - Hypertension [Recovered/Resolved]
  - Asthma [Not Recovered/Not Resolved]
  - Chlamydial infection [Recovered/Resolved]
  - Proteinuria [Recovered/Resolved]
  - Neutropenia [Recovered/Resolved]
  - Dysaesthesia [Not Recovered/Not Resolved]
  - Cough [Recovered/Resolved]
  - Pneumonia chlamydial [Recovered/Resolved]

NARRATIVE: CASE EVENT DATE: 20161130
